FAERS Safety Report 4520888-3 (Version None)
Quarter: 2004Q4

REPORT INFORMATION
  Report Type: 
  Country: None (occurrence: None)
  Receive Date: 20041208
  Receipt Date: 20041022
  Transmission Date: 20050328
  Serious: Yes (Other)
  Sender: FDA-Public Use
  Company Number: NZ-ABBOTT-04P-118-0278434-00

PATIENT
  Age: 44 Year
  Sex: Male

DRUGS (2)
  1. EPILIM [Suspect]
     Indication: EPILEPSY
     Route: 048
  2. PHENYTOIN [Suspect]
     Indication: EPILEPSY
     Route: 065

REACTIONS (2)
  - CONVULSION [None]
  - DRUG INEFFECTIVE [None]
